FAERS Safety Report 9385759 (Version 2)
Quarter: 2013Q3

REPORT INFORMATION
  Report Type: Spontaneous
  Country: BR (occurrence: BR)
  Receive Date: 20130705
  Receipt Date: 20130711
  Transmission Date: 20140515
  Serious: Yes (Other)
  Sender: FDA-Public Use
  Company Number: PHHY2013BR070571

PATIENT
  Sex: Female

DRUGS (3)
  1. RITALIN LA [Suspect]
     Indication: ATTENTION DEFICIT/HYPERACTIVITY DISORDER
     Dosage: 20 MG, QD (1 CAPSULE IN THE MORNING)
     Route: 048
  2. PRISTIQ [Suspect]
     Dosage: 1 DF, DAILY (1 TABLET IN THE MORNING)
  3. RIVOTRIL [Suspect]
     Dosage: 2 MG, QD (AT NIGHT)

REACTIONS (10)
  - Suicidal ideation [Recovering/Resolving]
  - Ear pain [Recovering/Resolving]
  - Pain [Recovering/Resolving]
  - Muscular weakness [Recovering/Resolving]
  - Emotional disorder [Recovering/Resolving]
  - Binge eating [Recovering/Resolving]
  - Thinking abnormal [Recovering/Resolving]
  - Fatigue [Recovering/Resolving]
  - Nausea [Recovering/Resolving]
  - Headache [Recovering/Resolving]
